FAERS Safety Report 8555438-8 (Version None)
Quarter: 2012Q3

REPORT INFORMATION
  Report Type: 
  Country: None (occurrence: None)
  Receive Date: 20120731
  Receipt Date: 20110825
  Transmission Date: 20120928
  Serious: Yes (Other)
  Sender: FDA-Public Use
  Company Number: US-ASTRAZENECA-2011SE12686

PATIENT
  Sex: Female

DRUGS (5)
  1. HYDROCODONE BITARTRATE AND ACETAMINOPHEN [Concomitant]
     Dosage: 7.5MG / 500 MG
     Dates: start: 20080416
  2. SEROQUEL [Suspect]
     Dosage: 300 MG TO 400 MG
     Route: 048
     Dates: start: 20071102
  3. RANITIDINE [Concomitant]
     Dates: start: 20071130
  4. AZITHROMYCIN [Concomitant]
     Dates: start: 20071123
  5. ALPRAZOLAM [Concomitant]
     Dates: start: 20080416

REACTIONS (3)
  - PANCREATITIS [None]
  - DIABETIC COMA [None]
  - TYPE 2 DIABETES MELLITUS [None]
